FAERS Safety Report 17848316 (Version 21)
Quarter: 2025Q2

REPORT INFORMATION
  Report Type: Report from Study
  Country: US (occurrence: US)
  Receive Date: 20200602
  Receipt Date: 20250613
  Transmission Date: 20250716
  Serious: Yes (Hospitalization, Other)
  Sender: TAKEDA
  Company Number: US-SHIRE-US202017793

PATIENT
  Age: 74 Year
  Sex: Female
  Weight: 56 kg

DRUGS (58)
  1. HUMAN IMMUNOGLOBULIN G [Suspect]
     Active Substance: HUMAN IMMUNOGLOBULIN G
     Indication: Immunodeficiency common variable
     Dosage: 25 GRAM, Q4WEEKS
  2. PREDNISONE [Suspect]
     Active Substance: PREDNISONE
     Indication: Product used for unknown indication
  3. METHADONE HYDROCHLORIDE [Concomitant]
     Active Substance: METHADONE HYDROCHLORIDE
  4. LORAZEPAM [Concomitant]
     Active Substance: LORAZEPAM
  5. ONDANSETRON HYDROCHLORIDE [Concomitant]
     Active Substance: ONDANSETRON HYDROCHLORIDE
  6. DIPHENHYDRAMINE [Concomitant]
     Active Substance: DIPHENHYDRAMINE
  7. BETAMETHASONE CLOTRIMAZOLE [Concomitant]
     Active Substance: BETAMETHASONE DIPROPIONATE\CLOTRIMAZOLE
  8. IBUPROFEN [Concomitant]
     Active Substance: IBUPROFEN
  9. EPINEPHRINE [Concomitant]
     Active Substance: EPINEPHRINE
  10. SODIUM CHLORIDE [Concomitant]
     Active Substance: SODIUM CHLORIDE
  11. BIOTIN [Concomitant]
     Active Substance: BIOTIN
  12. PROLIA [Concomitant]
     Active Substance: DENOSUMAB
  13. LYRICA [Concomitant]
     Active Substance: PREGABALIN
  14. CALCIUM\CHOLECALCIFEROL [Concomitant]
     Active Substance: CALCIUM\CHOLECALCIFEROL
  15. FIORICET [Concomitant]
     Active Substance: ACETAMINOPHEN\BUTALBITAL\CAFFEINE
  16. AIMOVIG [Concomitant]
     Active Substance: ERENUMAB-AOOE
  17. SODIUM CHLORIDE [Concomitant]
     Active Substance: SODIUM CHLORIDE
  18. VITAMIN D3 [Concomitant]
     Active Substance: CHOLECALCIFEROL
  19. MAGNESIUM [Concomitant]
     Active Substance: MAGNESIUM
  20. MELATONIN [Concomitant]
     Active Substance: MELATONIN
  21. ROSUVASTATIN CALCIUM [Concomitant]
     Active Substance: ROSUVASTATIN CALCIUM
  22. IMITREX [Concomitant]
     Active Substance: SUMATRIPTAN SUCCINATE
  23. BENADRYL [Concomitant]
     Active Substance: DIPHENHYDRAMINE HYDROCHLORIDE
  24. LIDOCAINE [Concomitant]
     Active Substance: LIDOCAINE
  25. PANTOPRAZOLE SODIUM [Concomitant]
     Active Substance: PANTOPRAZOLE SODIUM
  26. ACETAMINOPHEN [Concomitant]
     Active Substance: ACETAMINOPHEN
  27. CALCIUM\ERGOCALCIFEROL [Concomitant]
     Active Substance: CALCIUM\ERGOCALCIFEROL
  28. DEXILANT [Concomitant]
     Active Substance: DEXLANSOPRAZOLE
  29. VITAMIN C [Concomitant]
     Active Substance: ASCORBIC ACID
  30. WELLBUTRIN [Concomitant]
     Active Substance: BUPROPION HYDROCHLORIDE
  31. AMOXICILLIN [Concomitant]
     Active Substance: AMOXICILLIN
  32. DIVALPROEX SODIUM [Concomitant]
     Active Substance: DIVALPROEX SODIUM
  33. XANAX [Concomitant]
     Active Substance: ALPRAZOLAM
  34. FOLIC ACID [Concomitant]
     Active Substance: FOLIC ACID
  35. COENZYME Q10 [Concomitant]
     Active Substance: DIETARY SUPPLEMENT\UBIDECARENONE
  36. PRAVASTATIN [Concomitant]
     Active Substance: PRAVASTATIN
  37. NORCO [Concomitant]
     Active Substance: ACETAMINOPHEN\HYDROCODONE BITARTRATE
  38. LYSINE [Concomitant]
     Active Substance: LYSINE
  39. ATOGEPANT [Concomitant]
     Active Substance: ATOGEPANT
  40. ACETAMINOPHEN\HYDROCODONE [Concomitant]
     Active Substance: ACETAMINOPHEN\HYDROCODONE
  41. GABAPENTIN [Concomitant]
     Active Substance: GABAPENTIN
  42. QULIPTA [Concomitant]
     Active Substance: ATOGEPANT
  43. SENOKOT-S [Concomitant]
     Active Substance: DOCUSATE SODIUM\SENNOSIDES
  44. VALACYCLOVIR HYDROCHLORIDE [Concomitant]
     Active Substance: VALACYCLOVIR HYDROCHLORIDE
  45. Acid reducer [Concomitant]
  46. DIPHENHYDRAMINE HYDROCHLORIDE [Concomitant]
     Active Substance: DIPHENHYDRAMINE HYDROCHLORIDE
  47. TINEACIDE [Concomitant]
     Active Substance: UNDECYLENIC ACID
  48. NYSTATIN [Concomitant]
     Active Substance: NYSTATIN
  49. VITAMIN B [Concomitant]
     Active Substance: VITAMIN B
  50. CLOTRIMAZOLE [Concomitant]
     Active Substance: CLOTRIMAZOLE
  51. PENTOXIFYLLINE [Concomitant]
     Active Substance: PENTOXIFYLLINE
  52. IRON [Concomitant]
     Active Substance: IRON
  53. MAGNESIUM OXIDE [Concomitant]
     Active Substance: MAGNESIUM OXIDE
  54. ESCITALOPRAM OXALATE [Concomitant]
     Active Substance: ESCITALOPRAM OXALATE
  55. Nutrafol [Concomitant]
  56. VITAMIN B6 [Concomitant]
     Active Substance: PYRIDOXINE HYDROCHLORIDE
  57. VITAMIN B12 [Concomitant]
     Active Substance: CYANOCOBALAMIN
  58. ONDANSETRON [Concomitant]
     Active Substance: ONDANSETRON

REACTIONS (39)
  - Gastrointestinal infection [Unknown]
  - Osteomyelitis [Unknown]
  - Systemic lupus erythematosus [Unknown]
  - Lymphoma [Unknown]
  - Colitis [Unknown]
  - Neoplasm malignant [Unknown]
  - Osteonecrosis [Unknown]
  - Pulmonary thrombosis [Unknown]
  - Thrombosis [Unknown]
  - Tonsillitis [Not Recovered/Not Resolved]
  - Fibromyalgia [Unknown]
  - Product dose omission issue [Unknown]
  - Sinusitis [Not Recovered/Not Resolved]
  - Fatigue [Not Recovered/Not Resolved]
  - Gastroenteritis viral [Recovering/Resolving]
  - Fungal infection [Unknown]
  - Fungal skin infection [Unknown]
  - Ear infection [Unknown]
  - Eye infection [Not Recovered/Not Resolved]
  - Oral viral infection [Recovering/Resolving]
  - Immune system disorder [Not Recovered/Not Resolved]
  - Oral pain [Unknown]
  - Illness [Not Recovered/Not Resolved]
  - Infection [Not Recovered/Not Resolved]
  - Bite [Unknown]
  - Mass [Unknown]
  - Oral infection [Unknown]
  - Coronavirus test positive [Unknown]
  - Skin abrasion [Unknown]
  - Confusional state [Unknown]
  - Delusion [Unknown]
  - Inappropriate schedule of product administration [Unknown]
  - Oral candidiasis [Unknown]
  - Feeling abnormal [Unknown]
  - Decreased appetite [Recovering/Resolving]
  - Pain [Unknown]
  - Malaise [Unknown]
  - Infusion site pain [Not Recovered/Not Resolved]
  - Tremor [Unknown]

NARRATIVE: CASE EVENT DATE: 20210301
